FAERS Safety Report 20421189 (Version 1)
Quarter: 2022Q1

REPORT INFORMATION
  Report Type: Spontaneous
  Country: US (occurrence: US)
  Receive Date: 20220203
  Receipt Date: 20220203
  Transmission Date: 20220423
  Serious: No
  Sender: FDA-Public Use
  Company Number: US-GW PHARMA-202201USGW00414

PATIENT
  Sex: Male

DRUGS (3)
  1. EPIDIOLEX [Suspect]
     Active Substance: CANNABIDIOL
     Indication: Lennox-Gastaut syndrome
     Dosage: 150 MILLIGRAM, BID
     Route: 048
     Dates: start: 20211228, end: 20220104
  2. EPIDIOLEX [Suspect]
     Active Substance: CANNABIDIOL
     Dosage: 300 MILLIGRAM, BID
     Route: 048
     Dates: start: 20220105, end: 20220112
  3. EPIDIOLEX [Suspect]
     Active Substance: CANNABIDIOL
     Dosage: 600 MILLIGRAM, BID
     Route: 048
     Dates: start: 20220113

REACTIONS (3)
  - Visual impairment [Unknown]
  - Hypersomnia [Unknown]
  - Somnolence [Unknown]
